FAERS Safety Report 7037291-7 (Version None)
Quarter: 2010Q4

REPORT INFORMATION
  Report Type: 
  Country: None (occurrence: None)
  Receive Date: 20101011
  Receipt Date: 20100929
  Transmission Date: 20110411
  Serious: Yes (Hospitalization)
  Sender: FDA-Public Use
  Company Number: IN-ELI_LILLY_AND_COMPANY-IN201009003775

PATIENT
  Sex: Female

DRUGS (3)
  1. FORTEO [Suspect]
     Indication: OSTEOPOROSIS
     Dosage: 20 UG, DAILY (1/D)
     Route: 058
     Dates: start: 20100301
  2. VITAMIN D [Concomitant]
     Indication: VITAMIN SUPPLEMENTATION
  3. CALCIUM [Concomitant]

REACTIONS (3)
  - FALL [None]
  - FRACTURE [None]
  - KIDNEY INFECTION [None]
